FAERS Safety Report 7494959-6 (Version None)
Quarter: 2011Q2

REPORT INFORMATION
  Report Type: 
  Country: None (occurrence: None)
  Receive Date: 20110520
  Receipt Date: 20110510
  Transmission Date: 20111010
  Serious: Yes (Hospitalization)
  Sender: FDA-Public Use
  Company Number: US-UCBSA-029352

PATIENT
  Sex: Female
  Weight: 141 kg

DRUGS (3)
  1. CIMZIA [Suspect]
     Indication: CROHN'S DISEASE
     Route: 058
     Dates: start: 20101204
  2. MELPHALAN HYDROCHLORIDE [Concomitant]
     Indication: CROHN'S DISEASE
  3. ENTOCORT EC [Concomitant]
     Indication: CROHN'S DISEASE

REACTIONS (1)
  - ABDOMINAL WALL ABSCESS [None]
